FAERS Safety Report 16979808 (Version 2)
Quarter: 2019Q4

REPORT INFORMATION
  Report Type: Report from Study
  Country: US (occurrence: US)
  Receive Date: 20191031
  Receipt Date: 20191115
  Transmission Date: 20200122
  Serious: Yes (Death, Hospitalization)
  Sender: FDA-Public Use
  Company Number: US-TAIHO ONCOLOGY  INC-EU-2019-02699

PATIENT
  Age: 63 Year
  Sex: Female

DRUGS (19)
  1. PROMETHAZINE HCL [Concomitant]
     Active Substance: PROMETHAZINE HYDROCHLORIDE
     Route: 048
     Dates: start: 20190705
  2. REGORAFENIB. [Concomitant]
     Active Substance: REGORAFENIB
     Route: 048
     Dates: start: 20180830, end: 20190205
  3. SODIUM CHLORIDE 0.9% [Concomitant]
     Active Substance: SODIUM CHLORIDE
     Route: 042
     Dates: start: 20180323, end: 20190305
  4. LONSURF [Suspect]
     Active Substance: TIPIRACIL HYDROCHLORIDE\TRIFLURIDINE
     Indication: COLON CANCER
     Dosage: LONSURF STRENGTH: 15MG AND 20MG. NUMBER OF CYCLES UNKNOWN
     Route: 048
     Dates: start: 20190214, end: 2019
  5. AMLODIPINE BESYLATE. [Concomitant]
     Active Substance: AMLODIPINE BESYLATE
     Route: 048
  6. GRANISETRON HCL [Concomitant]
     Route: 042
     Dates: start: 20180323, end: 20190702
  7. IRBESARTAN-HYDROCHLOROTHIAZIDE [Concomitant]
     Active Substance: HYDROCHLOROTHIAZIDE\IRBESARTAN
     Route: 048
  8. REQUIP [Concomitant]
     Active Substance: ROPINIROLE HYDROCHLORIDE
     Route: 048
  9. DEXTROSE. [Concomitant]
     Active Substance: DEXTROSE
     Dosage: 5% NS 0.9%
     Route: 042
     Dates: start: 20190628, end: 20190702
  10. OXYCODONE HYDROCHLORIDE. [Concomitant]
     Active Substance: OXYCODONE HYDROCHLORIDE
     Dates: start: 20161122
  11. PROCHLORPERAZINE MALEATE. [Concomitant]
     Active Substance: PROCHLORPERAZINE MALEATE
     Dates: start: 20190305
  12. HEPARIN LOCK FLUSH [Concomitant]
     Active Substance: HEPARIN SODIUM
     Route: 042
     Dates: start: 20161014, end: 20190702
  13. DEXAMETHASONE SODIUM PHOSPHATE. [Concomitant]
     Active Substance: DEXAMETHASONE SODIUM PHOSPHATE
     Route: 042
     Dates: start: 20180323, end: 20190702
  14. MAGOX 400 [Concomitant]
     Active Substance: MAGNESIUM OXIDE
     Route: 048
     Dates: start: 20180717, end: 20190305
  15. NEXIUM [Concomitant]
     Active Substance: ESOMEPRAZOLE MAGNESIUM
     Dosage: DELAYED RELEASE
     Route: 048
  16. KLOR-CON M20 [Concomitant]
     Active Substance: POTASSIUM CHLORIDE
     Dosage: CONTROLLED RELEASE
     Route: 048
     Dates: start: 20180814, end: 20190305
  17. LONSURF [Suspect]
     Active Substance: TIPIRACIL HYDROCHLORIDE\TRIFLURIDINE
     Indication: COLON CANCER METASTATIC
  18. ONDANSETRON HCL [Concomitant]
     Active Substance: ONDANSETRON HYDROCHLORIDE
     Route: 048
  19. ZOLOFT [Concomitant]
     Active Substance: SERTRALINE HYDROCHLORIDE
     Route: 048
     Dates: start: 20180508

REACTIONS (4)
  - Disease progression [Fatal]
  - Vomiting [Unknown]
  - Dyspnoea [Unknown]
  - Diarrhoea [Unknown]

NARRATIVE: CASE EVENT DATE: 2019
